FAERS Safety Report 21640217 (Version 6)
Quarter: 2023Q1

REPORT INFORMATION
  Report Type: Report from Study
  Country: SE (occurrence: SE)
  Receive Date: 20221124
  Receipt Date: 20230310
  Transmission Date: 20230418
  Serious: Yes (Hospitalization)
  Sender: FDA-Public Use
  Company Number: SE-002147023-NVSC2022SE258618

PATIENT
  Age: 63 Year
  Sex: Male
  Weight: 101.5 kg

DRUGS (18)
  1. LUTETIUM LU-177 VIPIVOTIDE TETRAXETAN [Suspect]
     Active Substance: LUTETIUM LU-177 VIPIVOTIDE TETRAXETAN
     Indication: Hormone-dependent prostate cancer
     Dosage: 7452 MBQ, ONCE/SINGLE
     Route: 042
     Dates: start: 20220315
  2. CISPLATIN [Suspect]
     Active Substance: CISPLATIN
     Indication: Prostate cancer
     Dosage: UNK
     Route: 065
     Dates: start: 20221103, end: 20230113
  3. GALLIUM GA-68 GOZETOTIDE [Suspect]
     Active Substance: GALLIUM GA-68 GOZETOTIDE
     Indication: Hormone-dependent prostate cancer
     Dosage: 149.52 MBQ, ONCE/SINGLE
     Route: 042
     Dates: start: 20220223
  4. ETOPOSIDE [Suspect]
     Active Substance: ETOPOSIDE
     Indication: Prostate cancer
     Dosage: UNK
     Route: 065
     Dates: start: 20221103, end: 20230113
  5. OMEPRAZOLE [Concomitant]
     Active Substance: OMEPRAZOLE
     Indication: Gastritis
     Dosage: UNK
     Route: 065
     Dates: start: 20221011
  6. OMEPRAZOLE [Concomitant]
     Active Substance: OMEPRAZOLE
     Indication: Prostate cancer
     Dosage: UNK
     Route: 065
     Dates: start: 20221103, end: 20230113
  7. ASPIRIN [Concomitant]
     Active Substance: ASPIRIN
     Indication: Myocardial infarction
     Dosage: UNK
     Route: 065
     Dates: start: 20141030, end: 20221115
  8. METOPROLOL [Concomitant]
     Active Substance: METOPROLOL
     Indication: Hypertension
     Dosage: UNK
     Route: 065
     Dates: start: 20170919
  9. RAMIPRIL [Concomitant]
     Active Substance: RAMIPRIL
     Indication: Hypertension
     Dosage: UNK
     Route: 065
     Dates: start: 20170321
  10. ATORVASTATIN [Concomitant]
     Active Substance: ATORVASTATIN
     Indication: Hyperlipidaemia
     Dosage: UNK
     Route: 065
     Dates: start: 20141103
  11. SPIRONOLACTONE [Concomitant]
     Active Substance: SPIRONOLACTONE
     Indication: Hypertension
     Dosage: UNK
     Route: 065
     Dates: start: 20220214
  12. METFORMIN [Concomitant]
     Active Substance: METFORMIN HYDROCHLORIDE
     Indication: Type 2 diabetes mellitus
     Dosage: UNK
     Route: 065
     Dates: start: 20160105
  13. NITROGLYCERIN [Concomitant]
     Active Substance: NITROGLYCERIN
     Indication: Myocardial infarction
     Dosage: UNK
     Route: 065
     Dates: start: 20141103
  14. CLOBETASOL PROPIONATE [Concomitant]
     Active Substance: CLOBETASOL PROPIONATE
     Indication: Psoriasis
     Dosage: UNK
     Route: 065
     Dates: start: 20170627
  15. PREDNISOLONE [Concomitant]
     Active Substance: PREDNISOLONE
     Indication: Prostate cancer
     Dosage: UNK
     Route: 065
     Dates: start: 20220314
  16. ABIRATERONE [Concomitant]
     Active Substance: ABIRATERONE
     Indication: Product used for unknown indication
     Dosage: 1000 MG, ONCE
     Route: 065
     Dates: start: 20220315
  17. TRIPTORELIN [Concomitant]
     Active Substance: TRIPTORELIN
     Indication: Product used for unknown indication
     Dosage: 22.5 MG, EVERY 24 WEEKS
     Route: 065
     Dates: start: 20220712
  18. NYSTATIN [Concomitant]
     Active Substance: NYSTATIN
     Indication: Stomatitis
     Dosage: 100000 IE/ML
     Route: 048
     Dates: start: 20221111, end: 20221118

REACTIONS (5)
  - Febrile neutropenia [Recovered/Resolved]
  - Platelet count decreased [Recovering/Resolving]
  - Anaemia [Recovering/Resolving]
  - C-reactive protein increased [Recovered/Resolved]
  - White blood cell count decreased [Recovering/Resolving]

NARRATIVE: CASE EVENT DATE: 20221115
